FAERS Safety Report 8357921-7 (Version None)
Quarter: 2012Q2

REPORT INFORMATION
  Report Type: 
  Country: None (occurrence: None)
  Receive Date: 20120514
  Receipt Date: 20120505
  Transmission Date: 20120825
  Serious: Yes (Other)
  Sender: FDA-Public Use
  Company Number: US-JNJFOC-20120506937

PATIENT
  Sex: Female
  Weight: 77.11 kg

DRUGS (7)
  1. NEXIUM [Concomitant]
     Indication: GASTRIC DISORDER
     Route: 048
  2. AMBIEN [Concomitant]
     Indication: SLEEP DISORDER THERAPY
     Route: 048
  3. XANAX [Concomitant]
     Indication: ANXIETY
  4. CLONIDINE [Concomitant]
     Indication: BLOOD PRESSURE
     Dosage: 1/2 TABS FOUR TIMES A DAY
     Route: 048
  5. COZAAR [Concomitant]
     Indication: BLOOD PRESSURE
     Route: 048
  6. XARELTO [Suspect]
     Indication: ATRIAL FIBRILLATION
     Route: 048
     Dates: start: 20111201
  7. NASAL SPRAY UNSPECIFIED [Concomitant]
     Indication: ASTHMA
     Route: 045

REACTIONS (14)
  - CYSTITIS INTERSTITIAL [None]
  - HEADACHE [None]
  - MALAISE [None]
  - BLADDER PAIN [None]
  - HEPATIC ENZYME ABNORMAL [None]
  - DIZZINESS [None]
  - WEIGHT INCREASED [None]
  - DECREASED APPETITE [None]
  - GINGIVAL BLEEDING [None]
  - OXYGEN SATURATION DECREASED [None]
  - MEMORY IMPAIRMENT [None]
  - BLOOD URINE PRESENT [None]
  - DYSGEUSIA [None]
  - DYSPNOEA [None]
